FAERS Safety Report 23334301 (Version 1)
Quarter: 2023Q4

REPORT INFORMATION
  Report Type: Other
  Country: CA (occurrence: CA)
  Receive Date: 20231223
  Receipt Date: 20231223
  Transmission Date: 20240110
  Serious: Yes (Hospitalization, Other)
  Sender: FDA-Public Use
  Company Number: CA-APOTEX-2023AP018087

PATIENT
  Age: 66 Year
  Sex: Male

DRUGS (3)
  1. DOXYCYCLINE [Suspect]
     Active Substance: DOXYCYCLINE
     Indication: Product used for unknown indication
     Dosage: UNK
     Route: 065
  2. AMOXICILLIN\CLAVULANIC ACID [Suspect]
     Active Substance: AMOXICILLIN\CLAVULANIC ACID
     Indication: Product used for unknown indication
     Dosage: UNK
     Route: 065
  3. MEPOLIZUMAB [Suspect]
     Active Substance: MEPOLIZUMAB
     Indication: Asthma
     Dosage: 100 MILLIGRAM, FREQUENCY 1 EVERY 4 WEEKS
     Route: 058

REACTIONS (8)
  - Adverse drug reaction [Recovering/Resolving]
  - Arthralgia [Recovering/Resolving]
  - Dermatitis acneiform [Recovering/Resolving]
  - Feeling hot [Recovering/Resolving]
  - Gait disturbance [Recovering/Resolving]
  - Induration [Recovering/Resolving]
  - Pneumonia [Recovering/Resolving]
  - Skin discolouration [Recovering/Resolving]
